FAERS Safety Report 5381896-6 (Version None)
Quarter: 2007Q2

REPORT INFORMATION
  Report Type: 
  Country: None (occurrence: None)
  Receive Date: 20070629
  Receipt Date: 20070330
  Transmission Date: 20071010
  Serious: No
  Sender: FDA-Public Use
  Company Number: PHEH2007US03838

PATIENT
  Age: 44 Year
  Sex: Female

DRUGS (1)
  1. EXJADE [Suspect]
     Indication: IRON OVERLOAD
     Dosage: 1000 MG, QD, ORAL
     Route: 048
     Dates: start: 20060406

REACTIONS (4)
  - CONTUSION [None]
  - OEDEMA PERIPHERAL [None]
  - PAIN IN EXTREMITY [None]
  - VISION BLURRED [None]
